FAERS Safety Report 21408047 (Version 1)
Quarter: 2022Q4

REPORT INFORMATION
  Report Type: Report from Study
  Country: US (occurrence: US)
  Receive Date: 20221004
  Receipt Date: 20221004
  Transmission Date: 20230112
  Serious: Yes (Other)
  Sender: FDA-Public Use
  Company Number: US-MYLANLABS-2022M1110447

PATIENT
  Age: 19 Year
  Sex: Male

DRUGS (23)
  1. CYTARABINE [Suspect]
     Active Substance: CYTARABINE
     Indication: Acute myeloid leukaemia
     Dosage: UNK
     Route: 065
  2. CYTARABINE [Suspect]
     Active Substance: CYTARABINE
     Dosage: FIRST LINE THERAPY
     Route: 065
  3. CYTARABINE [Suspect]
     Active Substance: CYTARABINE
     Dosage: SECOND LINE THERAPY
     Route: 065
  4. CYTARABINE [Suspect]
     Active Substance: CYTARABINE
     Dosage: ELEVENTH LINE THERAPY
     Route: 065
  5. ETOPOSIDE [Suspect]
     Active Substance: ETOPOSIDE
     Indication: Acute myeloid leukaemia
     Dosage: UNK
     Route: 065
  6. FLUDARABINE [Suspect]
     Active Substance: FLUDARABINE PHOSPHATE
     Indication: Acute myeloid leukaemia
     Dosage: SECOND LINE THERAPY
     Route: 065
  7. FLUDARABINE [Suspect]
     Active Substance: FLUDARABINE PHOSPHATE
     Dosage: ELEVENTH LINE THERAPY
     Route: 065
  8. MITOXANTRONE [Suspect]
     Active Substance: MITOXANTRONE HYDROCHLORIDE
     Indication: Acute myeloid leukaemia
     Dosage: FIRST LINE THERAPY
     Route: 065
  9. AZACITIDINE [Suspect]
     Active Substance: AZACITIDINE
     Indication: Acute myeloid leukaemia
     Dosage: SECOND LINE THERAPY
     Route: 065
  10. AZACITIDINE [Suspect]
     Active Substance: AZACITIDINE
     Dosage: NINTH LINE THERAPY
     Route: 065
  11. SORAFENIB [Suspect]
     Active Substance: SORAFENIB
     Indication: Acute myeloid leukaemia
     Dosage: TENTH LINE THERAPY
     Route: 065
  12. DAUNORUBICIN [Suspect]
     Active Substance: DAUNORUBICIN
     Indication: Acute myeloid leukaemia
     Dosage: UNK
     Route: 065
  13. DECITABINE [Suspect]
     Active Substance: DECITABINE
     Indication: Acute myeloid leukaemia
     Dosage: THIRD LINE THERAPY
     Route: 065
  14. DECITABINE [Suspect]
     Active Substance: DECITABINE
     Dosage: EIGHTH LINE THERAPY
     Route: 065
  15. DECITABINE [Suspect]
     Active Substance: DECITABINE
     Dosage: TENTH LINE THERAPY
     Route: 065
  16. VENETOCLAX [Suspect]
     Active Substance: VENETOCLAX
     Indication: Acute myeloid leukaemia
     Dosage: EIGHTH LINE THERAPY
     Route: 065
  17. VENETOCLAX [Suspect]
     Active Substance: VENETOCLAX
     Dosage: TENTH LINE THERAPY
     Route: 065
  18. MIDOSTAURIN [Suspect]
     Active Substance: MIDOSTAURIN
     Indication: Acute myeloid leukaemia
     Dosage: EIGHTH LINE THERAPY
     Route: 065
  19. PONATINIB [Suspect]
     Active Substance: PONATINIB
     Indication: Acute myeloid leukaemia
     Dosage: TENTH LINE THERAPY
     Route: 065
  20. PONATINIB [Suspect]
     Active Substance: PONATINIB
     Dosage: ELEVENTH LINE THERAPY
     Route: 065
  21. GILTERITINIB [Suspect]
     Active Substance: GILTERITINIB
     Indication: Acute myeloid leukaemia
     Dosage: 120 MILLIGRAM, QD (TENTH LINE THERAPY)
     Route: 065
  22. GILTERITINIB [Suspect]
     Active Substance: GILTERITINIB
     Dosage: 120 MILLIGRAM, QD (ELEVENTH LINE THERAPY)
     Route: 065
  23. VORINOSTAT [Suspect]
     Active Substance: VORINOSTAT
     Indication: Acute myeloid leukaemia
     Dosage: ELEVENTH LINE THERAPY
     Route: 065

REACTIONS (1)
  - Drug ineffective [Unknown]
